FAERS Safety Report 9997776 (Version 1)
Quarter: 2014Q1

REPORT INFORMATION
  Report Type: Spontaneous
  Country: US (occurrence: None)
  Receive Date: 20140304
  Receipt Date: 20140304
  Transmission Date: 20141002
  Serious: Yes (Hospitalization, Other)
  Sender: FDA-Public Use
  Company Number: RB-50442-2013

PATIENT
  Sex: Male

DRUGS (3)
  1. BUPRENORPHINE 8 MG (NONE) [Suspect]
     Indication: DRUG DEPENDENCE
     Route: 060
     Dates: start: 201205, end: 20130215
  2. ATIVAN [Suspect]
     Route: 048
     Dates: end: 2012
  3. XANAX (NOT SPECIFIED) [Suspect]
     Indication: ANXIETY
     Dosage: VARIOUS DOSES ORAL
     Route: 048

REACTIONS (6)
  - Wrong technique in drug usage process [None]
  - Substance abuse [None]
  - Muscle spasms [None]
  - Convulsion [None]
  - Drug abuse [None]
  - Overdose [None]
